FAERS Safety Report 18012924 (Version 1)
Quarter: 2020Q3

REPORT INFORMATION
  Report Type: Spontaneous
  Country: NL (occurrence: NL)
  Receive Date: 20200713
  Receipt Date: 20200713
  Transmission Date: 20201103
  Serious: Yes (Other)
  Sender: FDA-Public Use
  Company Number: NL-ACCORD-187259

PATIENT
  Age: 79 Year
  Sex: Female

DRUGS (1)
  1. INJEXATE [Suspect]
     Active Substance: METHOTREXATE SODIUM
     Indication: RHEUMATIC DISORDER
     Dosage: STRENGTH: 25MG/WWSP 0.5ML
     Route: 051
     Dates: start: 20190809

REACTIONS (2)
  - Needle issue [Unknown]
  - Injection site pain [Unknown]
